FAERS Safety Report 21047127 (Version 1)
Quarter: 2022Q3

REPORT INFORMATION
  Report Type: Spontaneous
  Country: US (occurrence: None)
  Receive Date: 20220705
  Receipt Date: 20220705
  Transmission Date: 20221027
  Serious: No
  Sender: FDA-Public Use
  Company Number: None

PATIENT
  Age: 62 Year
  Sex: Male
  Weight: 87.75 kg

DRUGS (8)
  1. PAXLOVID [Suspect]
     Active Substance: NIRMATRELVIR\RITONAVIR
     Indication: COVID-19
     Dosage: FREQUENCY : TWICE A DAY;?
     Route: 048
     Dates: start: 20220703, end: 20220704
  2. EFFEXOR [Concomitant]
     Active Substance: VENLAFAXINE HYDROCHLORIDE
  3. D [Concomitant]
  4. C [Concomitant]
  5. VITAMIN B12 [Concomitant]
     Active Substance: CYANOCOBALAMIN
  6. UNSPECIFIED INGREDIENT [Concomitant]
     Active Substance: UNSPECIFIED INGREDIENT
  7. OSCILLOCOCCINUM [Concomitant]
     Active Substance: CAIRINA MOSCHATA HEART/LIVER AUTOLYSATE
  8. GINGER [Concomitant]
     Active Substance: GINGER

REACTIONS (12)
  - Throat tightness [None]
  - Wheezing [None]
  - Cough [None]
  - Productive cough [None]
  - Diarrhoea [None]
  - Oropharyngeal pain [None]
  - Dysphagia [None]
  - Dysphonia [None]
  - Myalgia [None]
  - Pain of skin [None]
  - Hair disorder [None]
  - Urticaria [None]

NARRATIVE: CASE EVENT DATE: 20220704
